FAERS Safety Report 11357095 (Version 1)
Quarter: 2015Q3

REPORT INFORMATION
  Report Type: Spontaneous
  Country: US (occurrence: US)
  Receive Date: 20150803
  Receipt Date: 20150803
  Transmission Date: 20151125
  Serious: No
  Sender: FDA-Public Use
  Company Number: US-ELI_LILLY_AND_COMPANY-US201309002031

PATIENT
  Age: 13 Year
  Sex: Male

DRUGS (1)
  1. STRATTERA [Suspect]
     Active Substance: ATOMOXETINE HYDROCHLORIDE
     Indication: IMPULSIVE BEHAVIOUR
     Dosage: 60 MG, QD
     Route: 065

REACTIONS (3)
  - Abdominal pain upper [Unknown]
  - Oral mucosal eruption [Unknown]
  - Off label use [Unknown]
